FAERS Safety Report 11559785 (Version 2)
Quarter: 2020Q1

REPORT INFORMATION
  Report Type: Spontaneous
  Country: US (occurrence: US)
  Receive Date: 20150928
  Receipt Date: 20200331
  Transmission Date: 20200409
  Serious: Yes (Death, Other)
  Sender: FDA-Public Use
  Company Number: US-ASTRAZENECA-2015SE91416

PATIENT
  Age: 21892 Day
  Sex: Female
  Weight: 96.6 kg

DRUGS (23)
  1. BYETTA [Suspect]
     Active Substance: EXENATIDE
     Route: 065
     Dates: start: 20071206, end: 200802
  2. VICTOZA [Suspect]
     Active Substance: LIRAGLUTIDE
     Route: 065
     Dates: start: 20110426, end: 201307
  3. FENTANYL CIT [Concomitant]
  4. SIMVASTATIN. [Concomitant]
     Active Substance: SIMVASTATIN
  5. ENOXAPARIN [Concomitant]
     Active Substance: ENOXAPARIN
  6. ONDANSETRON [Concomitant]
     Active Substance: ONDANSETRON
  7. BUPROPION. [Concomitant]
     Active Substance: BUPROPION
  8. MIDAZOLAM. [Concomitant]
     Active Substance: MIDAZOLAM
  9. VANCOMYCIN [Concomitant]
     Active Substance: VANCOMYCIN
  10. JANUVIA [Suspect]
     Active Substance: SITAGLIPTIN PHOSPHATE
     Route: 065
     Dates: start: 20080606, end: 201104
  11. CEFEPIME [Concomitant]
     Active Substance: CEFEPIME HYDROCHLORIDE
  12. PANTOPRAZOLE [Concomitant]
     Active Substance: PANTOPRAZOLE
  13. HYDROCOD/APAP [Concomitant]
  14. INSULIN GLARGINE [Concomitant]
     Active Substance: INSULIN GLARGINE
  15. LEVOTHYROXINE. [Concomitant]
     Active Substance: LEVOTHYROXINE
  16. VICTOZA [Suspect]
     Active Substance: LIRAGLUTIDE
     Dosage: 0.6 MG/0.1ML PEN
     Route: 065
     Dates: start: 200104, end: 201307
  17. GABAPENTIN. [Concomitant]
     Active Substance: GABAPENTIN
  18. HEPARIN [Concomitant]
     Active Substance: HEPARIN SODIUM
  19. SODIUM CHLORIDE. [Concomitant]
     Active Substance: SODIUM CHLORIDE
  20. LIDOCAINE. [Concomitant]
     Active Substance: LIDOCAINE
  21. FUROSEMIDE. [Concomitant]
     Active Substance: FUROSEMIDE
  22. RAMIPRIL. [Concomitant]
     Active Substance: RAMIPRIL
  23. ASPIRIN. [Concomitant]
     Active Substance: ASPIRIN

REACTIONS (7)
  - Renal failure [Unknown]
  - Adenocarcinoma pancreas [Fatal]
  - Emotional disorder [Unknown]
  - Acute kidney injury [Fatal]
  - Stress [Unknown]
  - Septic shock [Fatal]
  - Nephropathy [Unknown]

NARRATIVE: CASE EVENT DATE: 20130923
